FAERS Safety Report 9296230 (Version 3)
Quarter: 2013Q3

REPORT INFORMATION
  Report Type: Spontaneous
  Country: GB (occurrence: GB)
  Receive Date: 20130517
  Receipt Date: 20130830
  Transmission Date: 20140515
  Serious: Yes (Life-Threatening, Hospitalization)
  Sender: FDA-Public Use
  Company Number: GB-JNJFOC-20130507349

PATIENT
  Age: 17 Year
  Sex: Female
  Weight: 54.3 kg

DRUGS (2)
  1. REMICADE [Suspect]
     Indication: CROHN^S DISEASE
     Dosage: 3RD INFUSION.??DOSE REPORTED AS 270MG
     Route: 042
     Dates: start: 20130510, end: 20130510
  2. REMICADE [Suspect]
     Indication: CROHN^S DISEASE
     Dosage: TOTAL 3 INFUSIONS RECEIVED
     Route: 042

REACTIONS (2)
  - Infusion related reaction [Recovered/Resolved with Sequelae]
  - Anaphylactic shock [Recovered/Resolved with Sequelae]
